FAERS Safety Report 11302485 (Version 1)
Quarter: 2015Q3

REPORT INFORMATION
  Report Type: Spontaneous
  Country: AU (occurrence: AU)
  Receive Date: 20150723
  Receipt Date: 20150723
  Transmission Date: 20151125
  Serious: Yes (Death)
  Sender: FDA-Public Use
  Company Number: AU-CIPLA LTD.-2015AU05906

PATIENT

DRUGS (2)
  1. OXALIPLATIN. [Suspect]
     Active Substance: OXALIPLATIN
     Indication: OVARIAN CANCER RECURRENT
     Dosage: 130 MG/M2  DURING APPROXIMATELY 2 H,FOR EIGHT CYCLES
     Route: 042
  2. GEMCITABINE [Suspect]
     Active Substance: GEMCITABINE\GEMCITABINE HYDROCHLORIDE
     Indication: OVARIAN CANCER RECURRENT
     Dosage: 1000 MG/M2, FOR 30-60 MIN ON DAYS 1 AND 8 OF A 21-DAY CYCLE, FOR EIGHT CYCLES
     Route: 042

REACTIONS (1)
  - Ovarian cancer recurrent [Fatal]
